FAERS Safety Report 6689017-4 (Version None)
Quarter: 2010Q2

REPORT INFORMATION
  Report Type: 
  Country: None (occurrence: None)
  Receive Date: 20100420
  Receipt Date: 20100412
  Transmission Date: 20101027
  Serious: Yes (Hospitalization, Other)
  Sender: FDA-Public Use
  Company Number: PHHY2010CH22494

PATIENT
  Age: 42 Year
  Sex: Female

DRUGS (3)
  1. GLEEVEC [Suspect]
     Indication: ACUTE LYMPHOCYTIC LEUKAEMIA
     Dosage: 800 MG DAILY
     Dates: start: 20100223
  2. PREDNISONE TAB [Concomitant]
     Dosage: 90 MG DAILY
     Dates: start: 20100319, end: 20100323
  3. ALLOPURINOL [Concomitant]
     Dosage: 300 MG DAILY
     Dates: start: 20100201

REACTIONS (8)
  - ACUTE LYMPHOCYTIC LEUKAEMIA [None]
  - ASCITES [None]
  - C-REACTIVE PROTEIN INCREASED [None]
  - DRUG LEVEL INCREASED [None]
  - MALIGNANT NEOPLASM PROGRESSION [None]
  - PANCYTOPENIA [None]
  - PERICARDIAL EFFUSION [None]
  - PLEURAL EFFUSION [None]
